FAERS Safety Report 13133726 (Version 2)
Quarter: 2017Q3

REPORT INFORMATION
  Report Type: Spontaneous
  Country: CA (occurrence: CA)
  Receive Date: 20170120
  Receipt Date: 20170725
  Transmission Date: 20171127
  Serious: Yes (Other)
  Sender: FDA-Public Use
  Company Number: CA-APOTEX-2016AP015913

PATIENT
  Age: 64 Year
  Sex: Male

DRUGS (1)
  1. APO-ROSUVASTATIN [Suspect]
     Active Substance: ROSUVASTATIN
     Indication: PRODUCT USED FOR UNKNOWN INDICATION
     Dosage: UNK
     Route: 048

REACTIONS (3)
  - Myopathy [Recovering/Resolving]
  - Dyspnoea [Recovering/Resolving]
  - Diaphragm muscle weakness [Recovering/Resolving]
